FAERS Safety Report 7329006-X (Version None)
Quarter: 2011Q1

REPORT INFORMATION
  Report Type: 
  Country: None (occurrence: None)
  Receive Date: 20110303
  Receipt Date: 20110224
  Transmission Date: 20110831
  Serious: Yes (Life-Threatening)
  Sender: FDA-Public Use
  Company Number: PHHY2011RS15619

PATIENT
  Weight: 85 kg

DRUGS (4)
  1. BUSCOPAN [Concomitant]
     Dosage: UNK
  2. CLATROCYN [Concomitant]
  3. AMOXICILLIN AND CLAVULANATE POTASSIUM [Suspect]
     Indication: PNEUMONIA
     Dosage: UNK
     Route: 042
     Dates: start: 20110104, end: 20110107
  4. FAMOTIDINE [Concomitant]

REACTIONS (7)
  - DYSPNOEA [None]
  - CHOKING [None]
  - TACHYCARDIA [None]
  - BREATH SOUNDS ABNORMAL [None]
  - CYANOSIS [None]
  - HYPERHIDROSIS [None]
  - HYPERTENSION [None]
